FAERS Safety Report 8619330-2 (Version None)
Quarter: 2012Q3

REPORT INFORMATION
  Report Type: 
  Country: None (occurrence: None)
  Receive Date: 20120824
  Receipt Date: 20120822
  Transmission Date: 20120928
  Serious: Yes (Other)
  Sender: FDA-Public Use
  Company Number: CN-PFIZER INC-2012205367

PATIENT
  Sex: Female
  Weight: 80 kg

DRUGS (1)
  1. PIPERACILLIN/TAZOBACTAM [Suspect]
     Indication: INFECTION
     Dosage: 4.5 G, TWICE DAILY
     Route: 041
     Dates: start: 20100621, end: 20100621

REACTIONS (7)
  - TACHYPNOEA [None]
  - FACE OEDEMA [None]
  - CYANOSIS [None]
  - GENERALISED ERYTHEMA [None]
  - URTICARIA [None]
  - RASH [None]
  - DYSPNOEA [None]
